FAERS Safety Report 20777509 (Version 1)
Quarter: 2022Q2

REPORT INFORMATION
  Report Type: Spontaneous
  Country: JP (occurrence: JP)
  Receive Date: 20220503
  Receipt Date: 20220503
  Transmission Date: 20220721
  Serious: Yes (Other)
  Sender: FDA-Public Use
  Company Number: JP-Atnahs Limited-ATNAHS20220405385

PATIENT
  Age: 84 Year
  Sex: Female

DRUGS (3)
  1. BONVIVA [Suspect]
     Active Substance: IBANDRONATE SODIUM
     Indication: Product used for unknown indication
     Route: 042
     Dates: start: 2020
  2. BONVIVA [Suspect]
     Active Substance: IBANDRONATE SODIUM
     Route: 058
     Dates: start: 20220121
  3. BONVIVA [Suspect]
     Active Substance: IBANDRONATE SODIUM
     Route: 048
     Dates: start: 202203

REACTIONS (3)
  - Blood creatine phosphokinase increased [Unknown]
  - Muscle disorder [Unknown]
  - Incorrect route of product administration [Unknown]

NARRATIVE: CASE EVENT DATE: 20220121
